FAERS Safety Report 20709641 (Version 1)
Quarter: 2022Q2

REPORT INFORMATION
  Report Type: Report from Study
  Country: US (occurrence: US)
  Receive Date: 20220414
  Receipt Date: 20220414
  Transmission Date: 20220721
  Serious: Yes (Hospitalization, Other)
  Sender: FDA-Public Use
  Company Number: US-ABBVIE-22K-163-4220447-00

PATIENT
  Sex: Female

DRUGS (3)
  1. VENCLEXTA [Suspect]
     Active Substance: VENETOCLAX
     Indication: Acute myelomonocytic leukaemia
     Dosage: TAKE WITH A MEAL AND WATER AT THE SAME TIME EACH DAY
     Route: 048
  2. VENCLEXTA [Suspect]
     Active Substance: VENETOCLAX
     Indication: Myelodysplastic syndrome
     Dosage: TAKE WITH A MEAL AND WATER AT THE SAME TIME EACH DAY
     Route: 048
  3. VENCLEXTA [Suspect]
     Active Substance: VENETOCLAX
     Indication: Leukaemia

REACTIONS (5)
  - Deafness unilateral [Unknown]
  - Pneumonia [Unknown]
  - Epistaxis [Unknown]
  - Off label use [Unknown]
  - Laboratory test abnormal [Unknown]
